FAERS Safety Report 20371809 (Version 2)
Quarter: 2022Q3

REPORT INFORMATION
  Report Type: Spontaneous
  Country: US (occurrence: US)
  Receive Date: 20220124
  Receipt Date: 20220819
  Transmission Date: 20221027
  Serious: No
  Sender: FDA-Public Use
  Company Number: US-PFIZER INC-202101472416

PATIENT
  Age: 82 Year
  Sex: Male

DRUGS (1)
  1. XELJANZ [Suspect]
     Active Substance: TOFACITINIB CITRATE
     Dosage: 5 MG, 2X/DAY (5 MG TWICE DAILY)

REACTIONS (1)
  - Allergic sinusitis [Unknown]
